FAERS Safety Report 5834868-9 (Version None)
Quarter: 2008Q3

REPORT INFORMATION
  Report Type: 
  Country: None (occurrence: None)
  Receive Date: 20080805
  Receipt Date: 20080805
  Transmission Date: 20090109
  Serious: Yes (Hospitalization)
  Sender: FDA-Public Use
  Company Number: None

PATIENT
  Sex: Female
  Weight: 78 kg

DRUGS (3)
  1. FLUOROURACIL [Suspect]
     Dosage: 7332 MG
  2. CISPLATIN [Suspect]
     Dosage: 137 MG
  3. ERBITUX [Suspect]
     Dosage: 458 MG

REACTIONS (3)
  - DEHYDRATION [None]
  - NAUSEA [None]
  - SYNCOPE [None]
